FAERS Safety Report 4396187-X (Version None)
Quarter: 2004Q3

REPORT INFORMATION
  Report Type: 
  Country: None (occurrence: None)
  Receive Date: 20040713
  Receipt Date: 20040705
  Transmission Date: 20050211
  Serious: Yes (Hospitalization, Other)
  Sender: FDA-Public Use
  Company Number: PHBS2004US09110

PATIENT
  Age: 41 Year
  Sex: Male

DRUGS (1)
  1. TERBINAFINE HCL [Suspect]
     Indication: NAIL TINEA
     Dosage: 250 MG, QD
     Route: 048

REACTIONS (11)
  - ANOREXIA [None]
  - BILIRUBINURIA [None]
  - BLOOD UREA INCREASED [None]
  - DEHYDRATION [None]
  - DYSGEUSIA [None]
  - HAEMOPTYSIS [None]
  - KETONURIA [None]
  - NASAL CONGESTION [None]
  - NASOPHARYNGITIS [None]
  - URINE ANALYSIS ABNORMAL [None]
  - WEIGHT DECREASED [None]
